FAERS Safety Report 23337818 (Version 1)
Quarter: 2023Q4

REPORT INFORMATION
  Report Type: Spontaneous
  Country: US (occurrence: US)
  Receive Date: 20231226
  Receipt Date: 20231226
  Transmission Date: 20240110
  Serious: No
  Sender: FDA-Public Use
  Company Number: US-PFIZER INC-PV202300188505

PATIENT
  Age: 70 Year
  Sex: Female
  Weight: 84.898 kg

DRUGS (11)
  1. IBRANCE [Suspect]
     Active Substance: PALBOCICLIB
     Indication: Breast cancer
     Dosage: 125 MG, CYCLIC (ONCE DAILY ON DAYS 1-21 EVERY 28 DAYS)
     Route: 048
     Dates: start: 20220201
  2. IBRANCE [Suspect]
     Active Substance: PALBOCICLIB
     Indication: Bone cancer
     Dosage: 125 MG, CYCLIC (ONCE DAILY ON DAYS 1-21 EVERY 28 DAYS)
     Route: 048
     Dates: start: 20220311
  3. IBRANCE [Suspect]
     Active Substance: PALBOCICLIB
     Indication: Hepatic neoplasm
     Dosage: 125 MG, CYCLIC (ONCE DAILY ON DAYS 1-21 EVERY 28 DAYS)
     Route: 048
     Dates: start: 20220804
  4. IBRANCE [Suspect]
     Active Substance: PALBOCICLIB
     Indication: Hypoaesthesia
     Dosage: 125 MG, CYCLIC (ONCE DAILY ON DAYS 1-21 EVERY 28 DAYS)
     Route: 048
     Dates: start: 20221026
  5. IBRANCE [Suspect]
     Active Substance: PALBOCICLIB
     Dosage: 125 MG, CYCLIC (ONCE DAILY ON DAYS 1-21 EVERY 28 DAYS)
     Route: 048
     Dates: start: 20221101
  6. IBRANCE [Suspect]
     Active Substance: PALBOCICLIB
     Dosage: 125 MG, CYCLIC (ONCE DAILY ON DAYS 1-21 EVERY 28 DAYS)
     Route: 048
     Dates: start: 20230315
  7. IBRANCE [Suspect]
     Active Substance: PALBOCICLIB
     Dosage: 125 MG, CYCLIC (ONCE DAILY ON DAYS 1-21 EVERY 28 DAYS)
     Route: 048
     Dates: start: 20230606
  8. LETROZOLE [Concomitant]
     Active Substance: LETROZOLE
     Indication: Breast cancer
     Dosage: 2.5 MG, DAILY
     Route: 048
     Dates: start: 20220222
  9. LETROZOLE [Concomitant]
     Active Substance: LETROZOLE
     Indication: Hypoaesthesia
  10. XGEVA [Concomitant]
     Active Substance: DENOSUMAB
     Dosage: UNK
  11. FASLODEX [Concomitant]
     Active Substance: FULVESTRANT
     Dosage: UNK
     Dates: start: 202210

REACTIONS (1)
  - Neoplasm progression [Unknown]
